FAERS Safety Report 17945925 (Version 1)
Quarter: 2020Q2

REPORT INFORMATION
  Report Type: Spontaneous
  Country: US (occurrence: US)
  Receive Date: 20200626
  Receipt Date: 20200626
  Transmission Date: 20200714
  Serious: Yes (Other)
  Sender: FDA-Public Use
  Company Number: US-BIOGEN-2020BI00888513

PATIENT
  Age: 56 Year
  Sex: Female

DRUGS (1)
  1. TECFIDERA [Suspect]
     Active Substance: DIMETHYL FUMARATE
     Indication: MULTIPLE SCLEROSIS
     Route: 065
     Dates: start: 20130815, end: 2014

REACTIONS (30)
  - Diabetes mellitus [Unknown]
  - Dizziness [Unknown]
  - Glaucoma [Unknown]
  - Lymphocyte count decreased [Unknown]
  - Osteoporosis [Unknown]
  - Bladder disorder [Unknown]
  - Hypertension [Unknown]
  - Arthralgia [Unknown]
  - Neurosis [Unknown]
  - Gait inability [Unknown]
  - Musculoskeletal disorder [Unknown]
  - Cardiac disorder [Unknown]
  - Liver disorder [Unknown]
  - Diplopia [Unknown]
  - Asthenia [Unknown]
  - Microvascular coronary artery disease [Unknown]
  - Fibromyalgia [Unknown]
  - Nephropathy [Unknown]
  - Depression [Unknown]
  - Spinal osteoarthritis [Unknown]
  - Dysarthria [Unknown]
  - Autoimmune disorder [Unknown]
  - Anxiety [Unknown]
  - Flushing [Unknown]
  - Memory impairment [Unknown]
  - Loss of control of legs [Unknown]
  - Tracheomalacia [Unknown]
  - Electrocardiogram abnormal [Unknown]
  - Eye pain [Unknown]
  - Arthritis [Unknown]

NARRATIVE: CASE EVENT DATE: 20140601
